FAERS Safety Report 13779396 (Version 1)
Quarter: 2017Q3

REPORT INFORMATION
  Report Type: Other
  Country: GB (occurrence: TR)
  Receive Date: 20170721
  Receipt Date: 20170721
  Transmission Date: 20171127
  Serious: Yes (Life-Threatening, Other)
  Sender: FDA-Public Use
  Company Number: TR-INTERNATIONAL MEDICATION SYSTEMS, LIMITED-2023612

PATIENT
  Age: 30 Year
  Sex: Male

DRUGS (1)
  1. SODIUM HYDROGEN CARBONATE [Suspect]
     Active Substance: SODIUM BICARBONATE
     Indication: WEIGHT DECREASED
     Route: 048

REACTIONS (1)
  - Ventricular tachycardia [Recovered/Resolved]
